FAERS Safety Report 4875792-8 (Version None)
Quarter: 2006Q1

REPORT INFORMATION
  Report Type: 
  Country: None (occurrence: None)
  Receive Date: 20060104
  Receipt Date: 20051221
  Transmission Date: 20060701
  Serious: Yes (Other)
  Sender: FDA-Public Use
  Company Number: BR-2005-027666

PATIENT
  Age: 29 Year
  Sex: Female
  Weight: 60 kg

DRUGS (3)
  1. YASMIN [Suspect]
     Indication: ORAL CONTRACEPTION
     Dosage: 1 TAB(S), ORAL; SEE IMAGE
     Route: 048
     Dates: start: 20050601, end: 20050901
  2. YASMIN [Suspect]
     Indication: ORAL CONTRACEPTION
     Dosage: 1 TAB(S), ORAL; SEE IMAGE
     Route: 048
     Dates: start: 20050901, end: 20051001
  3. FLUIR      (FORMOTREOL FUMARATE) [Concomitant]

REACTIONS (5)
  - ALOPECIA [None]
  - ANXIETY [None]
  - HYPERTENSION [None]
  - OCULAR VASCULAR DISORDER [None]
  - RETINAL HAEMORRHAGE [None]
